FAERS Safety Report 8426554-6 (Version None)
Quarter: 2012Q2

REPORT INFORMATION
  Report Type: 
  Country: None (occurrence: None)
  Receive Date: 20120323
  Receipt Date: 20110906
  Transmission Date: 20120825
  Serious: Yes (Other)
  Sender: FDA-Public Use
  Company Number: 163-21880-11080357

PATIENT
  Age: 90 Year
  Sex: Male

DRUGS (37)
  1. FOLIC ACID [Concomitant]
  2. LIPITOR [Concomitant]
  3. VITAMIN D [Concomitant]
  4. HYDROCODONE BITARTRATE AND ACETAMINOPHEN [Concomitant]
  5. METAMUCIL-2 [Concomitant]
  6. ASPIRIN [Concomitant]
  7. FUROSEMIDE [Concomitant]
  8. PANDEL [Concomitant]
  9. NYSTOP (NYSTATIN) [Concomitant]
  10. REVLIMID [Suspect]
     Indication: MULTIPLE MYELOMA
     Dosage: 10 MG, ONE Q WEEK, PO
     Route: 048
     Dates: start: 20080402
  11. REVLIMID [Suspect]
     Indication: MYELODYSPLASTIC SYNDROME
     Dosage: 10 MG, ONE Q WEEK, PO
     Route: 048
     Dates: start: 20080402
  12. PREDNISONE [Concomitant]
  13. ERYTHROMYCIN [Concomitant]
  14. ALLOPURINOL [Concomitant]
  15. LEVAQUIN [Concomitant]
  16. POTASSIUM ACETATE [Concomitant]
  17. FLUDROCORTISONE ACETATE [Concomitant]
  18. CEPHALEXIN [Concomitant]
  19. PLAVIX [Concomitant]
  20. ISOSORBIDE MONONITRATE [Concomitant]
  21. CIPROFLOXACIN HYDROCHLORIDE [Concomitant]
  22. CHLORHEXIDINE GLUCONATE [Concomitant]
  23. PROTONIX [Concomitant]
  24. HEPARIN [Concomitant]
  25. STOOL SOFTENER (DOCUSATE SODIUM) [Concomitant]
  26. AMOXICILLIN [Concomitant]
  27. PANTOPRAZOLE [Concomitant]
  28. CALCIUM + D(OS-CAL) [Concomitant]
  29. MELATONIN [Concomitant]
  30. NICOTINAMIDE [Concomitant]
  31. METOPROLOL SUCCINATE [Concomitant]
  32. NEXIUM [Concomitant]
  33. NITROQUICK (GLYCERYL TRINITRATE) [Concomitant]
  34. DOXYCYCLINE HYCLATE [Concomitant]
  35. MEGESTROL ACETATE [Concomitant]
  36. POTASSIUM CHLORIDE [Concomitant]
  37. METRONIDAZOLE [Concomitant]

REACTIONS (2)
  - TACHYCARDIA [None]
  - BLOOD POTASSIUM DECREASED [None]
